FAERS Safety Report 22313349 (Version 1)
Quarter: 2023Q2

REPORT INFORMATION
  Report Type: Spontaneous
  Country: SE (occurrence: SE)
  Receive Date: 20230512
  Receipt Date: 20230512
  Transmission Date: 20230721
  Serious: Yes (Other)
  Sender: FDA-Public Use
  Company Number: None

PATIENT
  Age: 78 Year
  Sex: Female

DRUGS (1)
  1. ATORVASTATIN [Suspect]
     Active Substance: ATORVASTATIN
     Indication: Lipids increased
     Dosage: FOR ACTIVE INGREDIENT ATORVASTATIN THE STRENGTH IS 40 MILLIGRAMS. , FOR ACTIVE INGREDIENT ATORVASTAT
     Dates: start: 20220507, end: 20220602

REACTIONS (22)
  - Dyspnoea [Recovering/Resolving]
  - Visual impairment [Recovering/Resolving]
  - Asthenia [Recovering/Resolving]
  - Dizziness [Recovering/Resolving]
  - Insomnia [Recovering/Resolving]
  - Constipation [Recovering/Resolving]
  - Taste disorder [Recovering/Resolving]
  - Nausea [Recovering/Resolving]
  - Neck pain [Recovering/Resolving]
  - Dyspepsia [Recovering/Resolving]
  - Oropharyngeal pain [Recovering/Resolving]
  - Cough [Recovering/Resolving]
  - Fatigue [Recovering/Resolving]
  - Vision blurred [Recovering/Resolving]
  - Headache [Recovering/Resolving]
  - Decreased appetite [Recovering/Resolving]
  - Muscular weakness [Recovering/Resolving]
  - Abdominal pain [Recovering/Resolving]
  - Alopecia [Recovering/Resolving]
  - Muscle fatigue [Recovering/Resolving]
  - Malaise [Recovering/Resolving]
  - Blood glucose increased [Recovering/Resolving]

NARRATIVE: CASE EVENT DATE: 20220501
